FAERS Safety Report 5834502-8 (Version None)
Quarter: 2008Q3

REPORT INFORMATION
  Report Type: 
  Country: None (occurrence: None)
  Receive Date: 20080805
  Receipt Date: 20080729
  Transmission Date: 20090109
  Serious: Yes (Death, Other)
  Sender: FDA-Public Use
  Company Number: US-BAXTER-2008BH008059

PATIENT
  Age: 51 Year
  Sex: Female

DRUGS (1)
  1. HEPARIN SODIUM INJECTION [Suspect]
     Indication: THROMBOSIS PROPHYLAXIS
     Dosage: DOSE UNIT:UNKNOWN
     Route: 010
     Dates: start: 20020101, end: 20070101

REACTIONS (7)
  - ASTHENIA [None]
  - CONVULSION [None]
  - DEATH [None]
  - DISTURBANCE IN ATTENTION [None]
  - FLAT AFFECT [None]
  - HEADACHE [None]
  - VOMITING [None]
